FAERS Safety Report 15868396 (Version 4)
Quarter: 2020Q1

REPORT INFORMATION
  Report Type: Spontaneous
  Country: US (occurrence: US)
  Receive Date: 20190125
  Receipt Date: 20200115
  Transmission Date: 20200409
  Serious: No
  Sender: FDA-Public Use
  Company Number: US-BRISTOL-MYERS SQUIBB COMPANY-BMS-2019-006469

PATIENT
  Age: 60 Year
  Sex: Female
  Weight: 83.4 kg

DRUGS (2)
  1. HYDROXYCHLOROQUINE [Concomitant]
     Active Substance: HYDROXYCHLOROQUINE
     Indication: PRODUCT USED FOR UNKNOWN INDICATION
     Route: 065
  2. ORENCIA [Suspect]
     Active Substance: ABATACEPT
     Indication: RHEUMATOID ARTHRITIS
     Dosage: 125 MILLIGRAM, QWK
     Route: 058
     Dates: start: 20181128

REACTIONS (13)
  - Diarrhoea [Recovering/Resolving]
  - Chills [Unknown]
  - Hyperhidrosis [Unknown]
  - Dehydration [Unknown]
  - Malaise [Unknown]
  - Pain [Unknown]
  - Asthenia [Unknown]
  - Pyrexia [Unknown]
  - Ill-defined disorder [Unknown]
  - Fatigue [Unknown]
  - Sinusitis [Recovered/Resolved]
  - Nausea [Recovering/Resolving]
  - Influenza [Unknown]

NARRATIVE: CASE EVENT DATE: 20191229
